FAERS Safety Report 18189782 (Version 2)
Quarter: 2021Q3

REPORT INFORMATION
  Report Type: Spontaneous
  Country: US (occurrence: US)
  Receive Date: 20200825
  Receipt Date: 20210923
  Transmission Date: 20211014
  Serious: No
  Sender: FDA-Public Use
  Company Number: US-CELLTRION INC.-2020US024943

PATIENT

DRUGS (1)
  1. INFLECTRA [Suspect]
     Active Substance: INFLIXIMAB-DYYB
     Indication: PRODUCT USED FOR UNKNOWN INDICATION
     Dosage: 330 MILLIGRAM, CYCLIC (ON WEEK 0, WEEK 2, WEEK 6, AND THEN EVERY 14 DAYS)
     Route: 065

REACTIONS (1)
  - Product prescribing issue [Unknown]
